FAERS Safety Report 7715997-1 (Version None)
Quarter: 2011Q3

REPORT INFORMATION
  Report Type: 
  Country: None (occurrence: None)
  Receive Date: 20110822
  Receipt Date: 20110804
  Transmission Date: 20111222
  Serious: Yes (Hospitalization)
  Sender: FDA-Public Use
  Company Number: TPA2011A04836

PATIENT
  Age: 60 Year
  Sex: Male

DRUGS (3)
  1. DOXAZOSINA (DOXAZOSIN MESILATE) [Concomitant]
  2. ADENURIC (FEBUXOSTAT) [Suspect]
     Indication: GOUT
     Dosage: 80 MG, 1 IN 1 D, PER ORAL
     Route: 048
     Dates: start: 20110623, end: 20110624
  3. TLMISARTAN (TELMISARTAN) [Concomitant]

REACTIONS (2)
  - RASH GENERALISED [None]
  - PRURITUS [None]
